FAERS Safety Report 5166430-8 (Version None)
Quarter: 2006Q4

REPORT INFORMATION
  Report Type: 
  Country: None (occurrence: None)
  Receive Date: 20061207
  Receipt Date: 20061127
  Transmission Date: 20070319
  Serious: Yes (Other)
  Sender: FDA-Public Use
  Company Number: PHBS2006BE18413

PATIENT
  Age: 80 Year
  Sex: Female

DRUGS (7)
  1. AREDIA [Suspect]
     Indication: METASTASES TO BONE
     Dosage: 90 MG, EVERY 4 WEEKS
     Route: 042
     Dates: start: 20010628, end: 20020905
  2. INTERFERON ALFA [Concomitant]
     Dosage: 9 MU X 39 WEEKS
     Route: 065
     Dates: start: 20010508, end: 20010926
  3. INTERFERON ALFA [Concomitant]
     Dosage: 4.5 MU X 39 WEEKS
     Route: 065
     Dates: start: 20020314, end: 20020607
  4. CLEXANE [Concomitant]
     Dosage: UNK, DURING 9 DAYS
     Route: 065
     Dates: start: 20010508, end: 20020607
  5. ZOMETA [Suspect]
     Indication: METASTASES TO BONE
     Dosage: 4 MG, EVERY 4 WEEKS
     Route: 042
     Dates: start: 20020924, end: 20041014
  6. LASIX [Concomitant]
     Indication: HYPERTENSION
     Dosage: 40 MG, QD
     Route: 065
     Dates: start: 20010628
  7. ADALAT [Concomitant]
     Indication: HYPERTENSION
     Route: 065
     Dates: start: 20010628

REACTIONS (5)
  - DENTAL TREATMENT [None]
  - OSTEITIS [None]
  - OSTEONECROSIS [None]
  - TOOTH ABSCESS [None]
  - WOUND DEBRIDEMENT [None]
